FAERS Safety Report 16642328 (Version 1)
Quarter: 2019Q3

REPORT INFORMATION
  Report Type: Spontaneous
  Country: US (occurrence: US)
  Receive Date: 20190728
  Receipt Date: 20190728
  Transmission Date: 20191004
  Serious: Yes (Disabling)
  Sender: FDA-Public Use
  Company Number: None

PATIENT
  Age: 67 Year
  Sex: Female
  Weight: 118.35 kg

DRUGS (14)
  1. LORAZEPAM. [Concomitant]
     Active Substance: LORAZEPAM
  2. ACIPHEX [Concomitant]
     Active Substance: RABEPRAZOLE SODIUM
  3. DETROL [Concomitant]
     Active Substance: TOLTERODINE TARTRATE
  4. BYDUREON BCISE [Concomitant]
     Active Substance: EXENATIDE
  5. ADVIL-3 [Concomitant]
  6. SUDAFE PE COUGH SYRUP [Concomitant]
  7. SIMVASTATIN. [Concomitant]
     Active Substance: SIMVASTATIN
  8. ALLOPURINOL. [Concomitant]
     Active Substance: ALLOPURINOL
  9. BYDUREON BCISE [Suspect]
     Active Substance: EXENATIDE
     Indication: TYPE 2 DIABETES MELLITUS
     Dosage: ?          QUANTITY:1 INJECTION(S);OTHER FREQUENCY:ONCE WEEKLY;?
     Route: 030
     Dates: start: 20190512
  10. GLIMEPERIDE [Concomitant]
     Active Substance: GLIMEPIRIDE
  11. PRISTIQ EXTENDED-RELEASE [Concomitant]
     Active Substance: DESVENLAFAXINE SUCCINATE
  12. CEFDINIR. [Concomitant]
     Active Substance: CEFDINIR
  13. FLUCONAZOLE. [Concomitant]
     Active Substance: FLUCONAZOLE
  14. BUPROPION. [Concomitant]
     Active Substance: BUPROPION

REACTIONS (2)
  - Suicidal ideation [None]
  - Depression [None]

NARRATIVE: CASE EVENT DATE: 20190515
